FAERS Safety Report 5007067-0 (Version None)
Quarter: 2006Q2

REPORT INFORMATION
  Report Type: 
  Country: None (occurrence: None)
  Receive Date: 20060519
  Receipt Date: 20060512
  Transmission Date: 20061013
  Serious: Yes (Hospitalization)
  Sender: FDA-Public Use
  Company Number: JP-BOEHRINGER INGELHEIM PHARMACEUTICALS, INC.-2006-DE-02468GD

PATIENT
  Sex: Male

DRUGS (2)
  1. MEXILETINE HYDROCHLORIDE [Suspect]
     Indication: VENTRICULAR EXTRASYSTOLES
  2. BETA-BLOCKER [Suspect]
     Indication: LONG QT SYNDROME CONGENITAL
     Route: 048

REACTIONS (2)
  - DISEASE RECURRENCE [None]
  - SYNCOPE [None]
